FAERS Safety Report 5365907-X (Version None)
Quarter: 2007Q2

REPORT INFORMATION
  Report Type: 
  Country: None (occurrence: None)
  Receive Date: 20070611
  Receipt Date: 20070123
  Transmission Date: 20071010
  Serious: Yes (Death)
  Sender: FDA-Public Use
  Company Number: USA-2007-0026302

PATIENT
  Age: 26 Year
  Sex: Male
  Weight: 104.3 kg

DRUGS (7)
  1. OXYCODONE HCL [Suspect]
     Indication: DRUG ABUSER
  2. MORPHINE SULFATE [Suspect]
     Indication: DRUG ABUSER
  3. METHADONE HCL [Suspect]
     Indication: DRUG ABUSER
  4. ETHANOL          (ETHANOL) [Suspect]
     Indication: ALCOHOL USE
  5. COCAINE             (COCAINE) [Suspect]
     Indication: DRUG ABUSER
  6. ACETAMINOPHEN [Suspect]
     Indication: DRUG ABUSER
  7. LORAZEPAM [Suspect]
     Indication: DRUG ABUSER

REACTIONS (2)
  - MULTIPLE DRUG OVERDOSE ACCIDENTAL [None]
  - SUBSTANCE ABUSE [None]
